FAERS Safety Report 7351896-5 (Version None)
Quarter: 2011Q1

REPORT INFORMATION
  Report Type: 
  Country: None (occurrence: None)
  Receive Date: 20110315
  Receipt Date: 20110310
  Transmission Date: 20110831
  Serious: Yes (Other)
  Sender: FDA-Public Use
  Company Number: US-BAYER-2011-022157

PATIENT
  Sex: Female

DRUGS (2)
  1. YASMIN [Suspect]
     Dosage: UNK
     Dates: start: 20050301, end: 20090124
  2. OCELLA [Suspect]
     Dosage: UNK
     Dates: start: 20050301, end: 20090124

REACTIONS (4)
  - PAIN [None]
  - EMOTIONAL DISTRESS [None]
  - INTRACRANIAL VENOUS SINUS THROMBOSIS [None]
  - INJURY [None]
